FAERS Safety Report 4383534-8 (Version None)
Quarter: 2004Q2

REPORT INFORMATION
  Report Type: 
  Country: None (occurrence: None)
  Receive Date: 20040616
  Receipt Date: 20040420
  Transmission Date: 20050107
  Serious: Yes (Other)
  Sender: FDA-Public Use
  Company Number: US-JNJFOC-20030601674

PATIENT
  Age: 24 Year
  Sex: Female
  Weight: 56.246 kg

DRUGS (5)
  1. ORTHO TRI-CYCLEN LO [Suspect]
     Indication: CONTRACEPTION
     Dosage: 1 DOSE(S), 1 IN 1 DAY, ORAL
     Route: 048
     Dates: start: 20021202, end: 20030610
  2. XANAX [Concomitant]
  3. PENICILLIN [Concomitant]
  4. BETAMETHASONE [Concomitant]
  5. PRENATAL VITAMINS (PRENATAL VITAMINS) [Concomitant]

REACTIONS (4)
  - ABORTION THREATENED [None]
  - DRUG EXPOSURE DURING PREGNANCY [None]
  - PREGNANCY ON ORAL CONTRACEPTIVE [None]
  - PREMATURE LABOUR [None]
